FAERS Safety Report 16799014 (Version 1)
Quarter: 2019Q3

REPORT INFORMATION
  Report Type: Spontaneous
  Country: US (occurrence: US)
  Receive Date: 20190912
  Receipt Date: 20190912
  Transmission Date: 20191005
  Serious: No
  Sender: FDA-Public Use
  Company Number: US-PFIZER INC-2019389670

PATIENT
  Age: 69 Year
  Sex: Female

DRUGS (1)
  1. XALKORI [Suspect]
     Active Substance: CRIZOTINIB
     Indication: LUNG NEOPLASM MALIGNANT
     Dosage: 250 MG, 2X/DAY
     Route: 048
     Dates: start: 201908

REACTIONS (14)
  - Dizziness [Unknown]
  - Chest discomfort [Unknown]
  - Memory impairment [Unknown]
  - Vomiting [Unknown]
  - Cough [Unknown]
  - Product dose omission [Unknown]
  - Muscular weakness [Unknown]
  - Paraesthesia [Unknown]
  - Dyspnoea [Unknown]
  - Throat tightness [Unknown]
  - Photophobia [Unknown]
  - Eyelid ptosis [Unknown]
  - Hypoaesthesia [Unknown]
  - Dysphonia [Unknown]
